FAERS Safety Report 4952422-8 (Version None)
Quarter: 2006Q1

REPORT INFORMATION
  Report Type: 
  Country: None (occurrence: None)
  Receive Date: 20060317
  Receipt Date: 20060306
  Transmission Date: 20060701
  Serious: Yes (Hospitalization)
  Sender: FDA-Public Use
  Company Number: 2005EU002701

PATIENT
  Age: 47 Year
  Sex: Male

DRUGS (9)
  1. FK506 (TACROLIMUS CAPSULES) CAPSULE [Suspect]
     Indication: LIVER TRANSPLANT
     Dosage: 0.5 MG UID/QD ORAL
     Route: 048
     Dates: start: 20041208
  2. MYCOPHENOLATE MOFETIL [Suspect]
     Indication: LIVER TRANSPLANT
     Dosage: 1000 MG UID/QD IV NOS
     Route: 042
     Dates: start: 20041203, end: 20041208
  3. MYCOPHENOLATE MOFETIL [Suspect]
     Indication: LIVER TRANSPLANT
     Dosage: 1000 MG UID/QD IV NOS
     Route: 042
     Dates: start: 20041209
  4. DACLIZUMAB (DACLIZUMAB) [Suspect]
     Indication: LIVER TRANSPLANT
     Dosage: 160 MG UID/QD IV
     Route: 042
     Dates: start: 20041204, end: 20041210
  5. METHYLPREDNISOLONE [Suspect]
     Indication: LIVER TRANSPLANT
     Dosage: 80 MG UID/QD
     Dates: start: 20041203, end: 20041208
  6. PREDNISONE TAB [Suspect]
     Indication: LIVER TRANSPLANT
     Dosage: 5 MG UID/QD
     Dates: start: 20041209
  7. ACYCLOVIR [Concomitant]
  8. SUCRALFATE [Concomitant]
  9. NADOLOL [Concomitant]

REACTIONS (2)
  - LIVER DISORDER [None]
  - VASCULAR PSEUDOANEURYSM [None]
